FAERS Safety Report 5826191-3 (Version None)
Quarter: 2008Q3

REPORT INFORMATION
  Report Type: 
  Country: None (occurrence: None)
  Receive Date: 20080729
  Receipt Date: 20080721
  Transmission Date: 20090109
  Serious: Yes (Disabling)
  Sender: FDA-Public Use
  Company Number: GB-PFIZER INC-2008061210

PATIENT
  Age: 41 Year
  Sex: Male
  Weight: 66 kg

DRUGS (2)
  1. ATORVASTATIN [Suspect]
     Indication: DIABETES MELLITUS
     Route: 048
     Dates: start: 20071004, end: 20071127
  2. SIMVASTATIN [Suspect]
     Indication: DIABETES MELLITUS
     Route: 048
     Dates: start: 20070515, end: 20070530

REACTIONS (1)
  - LETHARGY [None]
